FAERS Safety Report 9253348 (Version 2)
Quarter: 2013Q2

REPORT INFORMATION
  Report Type: Spontaneous
  Country: US (occurrence: US)
  Receive Date: 20130424
  Receipt Date: 20130520
  Transmission Date: 20140414
  Serious: Yes (Other)
  Sender: FDA-Public Use
  Company Number: US-BRISTOL-MYERS SQUIBB COMPANY-18792747

PATIENT
  Age: 61 Year
  Sex: Female
  Weight: 68.48 kg

DRUGS (10)
  1. COUMADIN TABS [Suspect]
     Indication: DEEP VEIN THROMBOSIS
     Dosage: TABS, 2013-STOPPED
     Route: 048
     Dates: start: 2013
  2. COUMADIN TABS [Suspect]
     Indication: PULMONARY EMBOLISM
     Dosage: TABS, 2013-STOPPED
     Route: 048
     Dates: start: 2013
  3. XARELTO [Suspect]
     Indication: PULMONARY EMBOLISM
     Dosage: TABS?FEB2013-FEB2013: 15MG 2/D?UNK2013: 20MG 1/D
     Route: 048
     Dates: start: 201302
  4. XARELTO [Suspect]
     Indication: DEEP VEIN THROMBOSIS
     Dosage: TABS?FEB2013-FEB2013: 15MG 2/D?UNK2013: 20MG 1/D
     Route: 048
     Dates: start: 201302
  5. VALIUM [Suspect]
     Indication: INSOMNIA
     Dosage: 2013-ONG
     Route: 048
     Dates: start: 201303
  6. NEURONTIN [Concomitant]
     Indication: FIBROMYALGIA
     Dosage: ONG
     Route: 048
  7. AMBIEN [Concomitant]
     Route: 048
     Dates: start: 201209
  8. VICODIN [Concomitant]
     Indication: PAIN
  9. DIAZEPAM [Concomitant]
     Indication: SLEEP DISORDER
  10. ZOLPIDEM [Concomitant]
     Indication: SLEEP DISORDER

REACTIONS (9)
  - Dyspnoea [Unknown]
  - Confusional state [Unknown]
  - Visual impairment [Unknown]
  - Oxygen saturation decreased [Unknown]
  - Insomnia [Unknown]
  - Contusion [Unknown]
  - Anxiety [Unknown]
  - Asthenia [Unknown]
  - Pain [Unknown]
